FAERS Safety Report 6736942-1 (Version None)
Quarter: 2010Q2

REPORT INFORMATION
  Report Type: 
  Country: None (occurrence: None)
  Receive Date: 20100522
  Receipt Date: 20100511
  Transmission Date: 20101027
  Serious: Yes (Death, Life-Threatening)
  Sender: FDA-Public Use
  Company Number: JP-ABBOTT-10P-087-0639887-00

PATIENT
  Age: 87 Year
  Sex: Male

DRUGS (7)
  1. LEUPLIN FOR INJECTION KIT 3.75 [Suspect]
     Indication: PROSTATE CANCER
     Route: 058
     Dates: start: 20070919, end: 20100312
  2. LOXONIN [Suspect]
     Indication: ANALGESIC THERAPY
     Route: 048
     Dates: start: 20090422, end: 20100325
  3. LOXONIN TAPE (LOXOPROFEN SODIUM) [Suspect]
     Indication: ANALGESIC THERAPY
     Route: 062
     Dates: start: 20090422, end: 20100325
  4. TAKEPRON [Concomitant]
     Indication: GASTRITIS
     Route: 048
     Dates: start: 20090501, end: 20100325
  5. CASODEX [Concomitant]
     Indication: PROSTATE CANCER
     Route: 048
     Dates: start: 20070822, end: 20091218
  6. PREDNISOLONE [Concomitant]
     Indication: RHEUMATOID ARTHRITIS
     Route: 048
     Dates: start: 20090515, end: 20100325
  7. ROCALTROL [Concomitant]
     Indication: OSTEOPOROSIS
     Route: 048
     Dates: start: 20091023, end: 20100325

REACTIONS (2)
  - GASTRIC ULCER HAEMORRHAGE [None]
  - PLATELET COUNT DECREASED [None]
